FAERS Safety Report 7543109-6 (Version None)
Quarter: 2011Q2

REPORT INFORMATION
  Report Type: 
  Country: None (occurrence: None)
  Receive Date: 20110613
  Receipt Date: 20110609
  Transmission Date: 20111010
  Serious: Yes (Death, Hospitalization)
  Sender: FDA-Public Use
  Company Number: PHFR2011GB03542

PATIENT
  Sex: Male

DRUGS (2)
  1. CLOZAPINE [Suspect]
     Indication: PSYCHOTIC DISORDER
  2. CLOZAPINE [Suspect]
     Indication: PARKINSON'S DISEASE
     Route: 048
     Dates: start: 20060221

REACTIONS (4)
  - LOWER RESPIRATORY TRACT INFECTION [None]
  - DEATH [None]
  - PARKINSON'S DISEASE [None]
  - GENERAL PHYSICAL HEALTH DETERIORATION [None]
